FAERS Safety Report 11793938 (Version 2)
Quarter: 2016Q1

REPORT INFORMATION
  Report Type: Spontaneous
  Country: US (occurrence: US)
  Receive Date: 20151202
  Receipt Date: 20160107
  Transmission Date: 20160525
  Serious: No
  Sender: FDA-Public Use
  Company Number: US-PFIZER INC-2015399547

PATIENT
  Age: 52 Year
  Sex: Male

DRUGS (3)
  1. SUTENT [Suspect]
     Active Substance: SUNITINIB MALATE
     Indication: RENAL NEOPLASM
     Dosage: 25 MG, CYCLIC (1 CAPSULE DAILY FOR 4 WEEKS, THEN 2 WEEKS OFF)
     Route: 048
  2. CENTRUM MEN [Concomitant]
     Dosage: UNK
  3. CARVEDILOL. [Concomitant]
     Active Substance: CARVEDILOL
     Dosage: UNK

REACTIONS (4)
  - Dysgeusia [Unknown]
  - Fatigue [Unknown]
  - Night sweats [Unknown]
  - Insomnia [Unknown]
